FAERS Safety Report 7876570-8 (Version None)
Quarter: 2011Q4

REPORT INFORMATION
  Report Type: 
  Country: None (occurrence: None)
  Receive Date: 20111031
  Receipt Date: 20111021
  Transmission Date: 20120403
  Serious: Yes (Disabling)
  Sender: FDA-Public Use
  Company Number: AU-ASTRAZENECA-2011SE60101

PATIENT
  Age: 70 Year
  Sex: Male
  Weight: 121.2 kg

DRUGS (22)
  1. LIPITOR [Concomitant]
  2. NOVOLOG MIX 70/30 [Concomitant]
     Dosage: 36 UNITS IN MORNING AND 46 UNITS IN NIGHT
  3. AMIODARONE HYDROCHLORIDE [Interacting]
     Route: 065
  4. MAGMIN [Concomitant]
  5. LEVOTHYROXINE SODIUM [Concomitant]
  6. PRAMIN [Concomitant]
     Indication: NAUSEA
     Dosage: AT 11 AM
  7. STRONG PAIN PLUS [Concomitant]
     Dosage: UP TO 3 TIMES PER DAY
  8. THIAMINE HCL [Concomitant]
     Dosage: TWO TIMES A DAY
  9. LERCANIDIPINE [Concomitant]
  10. TOPROL-XL [Suspect]
     Dosage: 190 MG TWICE A DAY+47.5 AT BED TIME
     Route: 048
  11. LANSOPRAZOLE [Concomitant]
  12. RESTAVIT [Concomitant]
     Indication: SLEEP DISORDER
     Dosage: UP TO 5 TIMES PER WEEK
  13. WARFARIN SODIUM [Concomitant]
  14. SLOW-K [Concomitant]
     Dosage: 2 BD
  15. UREMID [Concomitant]
     Dosage: 40 MG 2 IN MORNING AND 2 AT 11 AM
  16. COLOXYL WITH SENNA [Concomitant]
     Dosage: 1-2 AS REQUIRED
  17. PERIACTIN [Concomitant]
     Indication: PRURITUS
     Dosage: AS REQUIRED
  18. GASTROSTOP [Concomitant]
     Dosage: AS REQUIRED
  19. PERINDOPRIL ERBUMINE [Concomitant]
     Dosage: 5 AND 10 MG
     Dates: start: 20110718
  20. AVAPRO [Concomitant]
  21. GLICLAZIDE [Concomitant]
  22. ALLOSIG [Concomitant]
     Dates: start: 20110718

REACTIONS (11)
  - OFF LABEL USE [None]
  - BLOOD GLUCOSE ABNORMAL [None]
  - DRUG INTERACTION [None]
  - INSOMNIA [None]
  - CELLULITIS [None]
  - NEPHROLITHIASIS [None]
  - DIZZINESS [None]
  - NAUSEA [None]
  - HYPOAESTHESIA [None]
  - DYSPNOEA EXERTIONAL [None]
  - VERTIGO [None]
